FAERS Safety Report 10260621 (Version 1)
Quarter: 2014Q2

REPORT INFORMATION
  Report Type: Spontaneous
  Country: US (occurrence: US)
  Receive Date: 20140626
  Receipt Date: 20140626
  Transmission Date: 20141212
  Serious: Yes (Other)
  Sender: FDA-Public Use
  Company Number: 2014SP000817

PATIENT
  Age: 65 Year
  Sex: Male

DRUGS (13)
  1. FLUOROURACIL [Suspect]
     Indication: COLON CANCER
     Route: 042
     Dates: start: 20130612, end: 20130918
  2. FLUOROURACIL [Suspect]
     Indication: COLON CANCER
     Route: 040
     Dates: start: 20130612
  3. FLUOROURACIL [Suspect]
     Indication: COLON CANCER
     Dates: start: 20130925
  4. OXALIPLATIN [Suspect]
     Indication: COLON CANCER
     Route: 042
     Dates: start: 20130612, end: 20130918
  5. OXALIPLATIN [Suspect]
     Indication: COLON CANCER
     Dates: start: 20130925
  6. IRINOTECAN [Suspect]
     Indication: COLON CANCER
     Route: 042
     Dates: start: 20130612, end: 20130918
  7. IRINOTECAN [Suspect]
     Indication: COLON CANCER
     Dates: start: 20130925
  8. CALCIUM FOLINATE [Suspect]
     Indication: COLON CANCER
     Route: 042
     Dates: start: 20130724, end: 20130918
  9. CALCIUM FOLINATE [Suspect]
     Indication: COLON CANCER
     Dates: start: 20130925
  10. BEVACIZUMAB [Suspect]
     Indication: COLON CANCER
     Route: 042
     Dates: start: 20130612, end: 20130918
  11. BEVACIZUMAB [Suspect]
     Indication: COLON CANCER
     Dates: start: 20130925
  12. CARVEDILOL [Concomitant]
     Indication: HYPERTENSION
     Dates: start: 201105
  13. LISINOPRIL [Concomitant]
     Indication: HYPERTENSION
     Dates: start: 201105

REACTIONS (1)
  - Hypertension [Recovered/Resolved]
